FAERS Safety Report 25206943 (Version 1)
Quarter: 2025Q2

REPORT INFORMATION
  Report Type: Spontaneous
  Country: GR (occurrence: GR)
  Receive Date: 20250417
  Receipt Date: 20250417
  Transmission Date: 20250717
  Serious: Yes (Other)
  Sender: REGENERON
  Company Number: GR-BAYER-2025A048845

PATIENT
  Age: 82 Year
  Sex: Female

DRUGS (1)
  1. EYLEA [Suspect]
     Active Substance: AFLIBERCEPT
     Indication: Product used for unknown indication

REACTIONS (4)
  - Retinal oedema [Unknown]
  - Pneumonia [Unknown]
  - Cataract operation [Unknown]
  - Viral infection [Unknown]

NARRATIVE: CASE EVENT DATE: 20241022
